FAERS Safety Report 4344845-5 (Version None)
Quarter: 2004Q2

REPORT INFORMATION
  Report Type: 
  Country: None (occurrence: None)
  Receive Date: 20040420
  Receipt Date: 20040418
  Transmission Date: 20050107
  Serious: Yes (Hospitalization)
  Sender: FDA-Public Use
  Company Number: REL-RIR-107

PATIENT
  Age: 72 Year
  Sex: Male

DRUGS (6)
  1. RYTHMOL [Suspect]
     Indication: ATRIAL FIBRILLATION
     Dosage: 600 MG QD; PO
     Route: 048
     Dates: start: 20040301, end: 20040305
  2. UROXATRAL [Concomitant]
  3. PREDNISONE [Concomitant]
  4. AMLODIPINE [Concomitant]
  5. FLUVASTATIN [Concomitant]
  6. CYCLOSPORINE [Concomitant]

REACTIONS (5)
  - ATRIAL FIBRILLATION [None]
  - BUNDLE BRANCH BLOCK RIGHT [None]
  - NERVOUS SYSTEM DISORDER [None]
  - TREMOR [None]
  - VERTIGO [None]
